FAERS Safety Report 13689795 (Version 1)
Quarter: 2017Q2

REPORT INFORMATION
  Report Type: Spontaneous
  Country: FR (occurrence: FR)
  Receive Date: 20170626
  Receipt Date: 20170626
  Transmission Date: 20170830
  Serious: Yes (Other)
  Sender: FDA-Public Use
  Company Number: FR-PFIZER INC-2017261605

PATIENT
  Age: 53 Year
  Sex: Male

DRUGS (10)
  1. LYRICA [Suspect]
     Active Substance: PREGABALIN
     Dosage: 150 MG, 4X/DAY
     Route: 048
  2. INIPOMP [Suspect]
     Active Substance: PANTOPRAZOLE SODIUM
     Dosage: 20 MG, 1X/DAY
     Route: 048
  3. AMOXICILLIN. [Suspect]
     Active Substance: AMOXICILLIN
     Dosage: 1500 MG, 1X/DAY
     Route: 048
  4. URSODESOXYCHOLIC ACID [Suspect]
     Active Substance: URSODIOL
     Dosage: 250 MG, 3X/DAY
     Route: 048
  5. VALACICLOVIR [Suspect]
     Active Substance: VALACYCLOVIR HYDROCHLORIDE
     Dosage: 1000 MG, 1X/DAY
     Route: 048
  6. NEORAL [Suspect]
     Active Substance: CYCLOSPORINE
     Dosage: 50 MG, 4X/DAY
     Route: 048
     Dates: start: 20170223
  7. BACTRIM [Suspect]
     Active Substance: SULFAMETHOXAZOLE\TRIMETHOPRIM
     Dosage: 1 DF (THREE TIMES WEEKLY)
     Route: 048
     Dates: start: 20170223
  8. MYCOSTATINE [Suspect]
     Active Substance: NYSTATIN
     Dosage: 30 ML, 1X/DAY
     Route: 048
     Dates: start: 20170223
  9. LAROXYL [Suspect]
     Active Substance: AMITRIPTYLINE
     Dosage: 6 MG, 1X/DAY
     Route: 048
     Dates: start: 20170223
  10. FLUCONAZOLE. [Suspect]
     Active Substance: FLUCONAZOLE
     Dosage: 200 MG, 2X/DAY
     Route: 048

REACTIONS (2)
  - Tremor [Unknown]
  - Asthenia [Unknown]

NARRATIVE: CASE EVENT DATE: 20170407
